FAERS Safety Report 19820375 (Version 1)
Quarter: 2021Q3

REPORT INFORMATION
  Report Type: Spontaneous
  Country: US (occurrence: US)
  Receive Date: 20210910
  Receipt Date: 20210910
  Transmission Date: 20211014
  Serious: No
  Sender: FDA-Public Use
  Company Number: None

PATIENT
  Age: 71 Year
  Sex: Male
  Weight: 63 kg

DRUGS (3)
  1. GABAPENTIN 300MG [Concomitant]
     Active Substance: GABAPENTIN
  2. ROSUVASTATIN 20MG [Concomitant]
     Active Substance: ROSUVASTATIN
  3. RETEVMO [Suspect]
     Active Substance: SELPERCATINIB
     Indication: LUNG NEOPLASM MALIGNANT
     Route: 048
     Dates: start: 20210709

REACTIONS (3)
  - Hypertension [None]
  - Therapy interrupted [None]
  - Product dispensing error [None]

NARRATIVE: CASE EVENT DATE: 20210910
